FAERS Safety Report 17822516 (Version 4)
Quarter: 2021Q3

REPORT INFORMATION
  Report Type: Report from Study
  Country: US (occurrence: US)
  Receive Date: 20200526
  Receipt Date: 20210820
  Transmission Date: 20211014
  Serious: No
  Sender: FDA-Public Use
  Company Number: US-SHIRE-US202016944

PATIENT
  Age: 40 Year
  Sex: Female

DRUGS (6)
  1. PARATHYROID HORMONE [Suspect]
     Active Substance: PARATHYROID HORMONE
     Dosage: 50 MICROGRAM
     Route: 058
  2. PARATHYROID HORMONE [Suspect]
     Active Substance: PARATHYROID HORMONE
     Indication: HYPOPARATHYROIDISM
     Dosage: 100 MICROGRAM, QD
     Route: 058
  3. PARATHYROID HORMONE [Suspect]
     Active Substance: PARATHYROID HORMONE
     Dosage: 50 MICROGRAM
     Route: 058
  4. PARATHYROID HORMONE [Suspect]
     Active Substance: PARATHYROID HORMONE
     Indication: HYPOPARATHYROIDISM
     Dosage: 100 MICROGRAM, QD
     Route: 058
  5. PARATHYROID HORMONE [Suspect]
     Active Substance: PARATHYROID HORMONE
     Indication: HYPOPARATHYROIDISM
     Dosage: 100 MICROGRAM, QD
     Route: 058
  6. PARATHYROID HORMONE [Suspect]
     Active Substance: PARATHYROID HORMONE
     Dosage: 50 MICROGRAM
     Route: 058

REACTIONS (7)
  - Paraesthesia [Unknown]
  - Device issue [Unknown]
  - Product dose omission issue [Unknown]
  - Muscle spasms [Unknown]
  - Injection site bruising [Unknown]
  - Hypoaesthesia [Unknown]
  - Product availability issue [Unknown]

NARRATIVE: CASE EVENT DATE: 20210223
